FAERS Safety Report 9928987 (Version 2)
Quarter: 2014Q1

REPORT INFORMATION
  Report Type: Spontaneous
  Country: IT (occurrence: IT)
  Receive Date: 20140227
  Receipt Date: 20140327
  Transmission Date: 20141002
  Serious: Yes (Other)
  Sender: FDA-Public Use
  Company Number: IT-WATSON-2014-03068

PATIENT
  Age: 83 Year
  Sex: Female

DRUGS (4)
  1. RAMIPRIL (UNKNOWN) [Suspect]
     Indication: HYPERTENSION
     Dosage: 2.5 MG, DAILY
     Route: 048
     Dates: start: 20130216, end: 20140115
  2. LOBIDIUR [Concomitant]
     Indication: HYPERTENSION
     Dosage: 0.5 DF, UNK
     Route: 048
     Dates: end: 20140115
  3. CARDIOASPIRIN [Concomitant]
     Indication: ISCHAEMIC STROKE
     Dosage: 100 MG, UNK
     Route: 048
     Dates: end: 20140115
  4. MICROSER [Concomitant]
     Indication: PRODUCT USED FOR UNKNOWN INDICATION
     Dosage: 8 MG, UNK
     Route: 048
     Dates: end: 20140115

REACTIONS (2)
  - Swollen tongue [Recovering/Resolving]
  - Swelling face [Recovering/Resolving]
